FAERS Safety Report 9113853 (Version 1)
Quarter: 2013Q1

REPORT INFORMATION
  Report Type: Spontaneous
  Country: US (occurrence: US)
  Receive Date: 20130129
  Receipt Date: 20130129
  Transmission Date: 20140127
  Serious: No
  Sender: FDA-Public Use
  Company Number: US-PFIZER INC-2013033984

PATIENT
  Sex: Female

DRUGS (2)
  1. EFFEXOR XR [Suspect]
     Dosage: UNK
  2. GEODON [Suspect]
     Dosage: UNK

REACTIONS (3)
  - Vertigo [Unknown]
  - Nausea [Unknown]
  - Drug withdrawal syndrome [Unknown]
